FAERS Safety Report 7044525-1 (Version None)
Quarter: 2010Q4

REPORT INFORMATION
  Report Type: 
  Country: None (occurrence: None)
  Receive Date: 20101014
  Receipt Date: 20101005
  Transmission Date: 20110411
  Serious: Yes (Other)
  Sender: FDA-Public Use
  Company Number: CA-JNJFOC-20100400835

PATIENT
  Sex: Male
  Weight: 75 kg

DRUGS (14)
  1. REMICADE [Suspect]
     Indication: ANKYLOSING SPONDYLITIS
     Route: 042
  2. REMICADE [Suspect]
     Indication: CROHN'S DISEASE
     Route: 042
  3. ASACOL [Concomitant]
     Dosage: DOSE: 6 PILLS PER DAY
  4. PREDNISONE [Concomitant]
     Route: 048
  5. MTX [Concomitant]
     Dosage: DOSE: 4-8 PILLS PER DAY
     Route: 048
  6. ZANTAC [Concomitant]
     Dosage: DOSE: UP TO 150 MG PER DAY
  7. VERAPAMIL SR NOS [Concomitant]
     Route: 048
  8. QUININE [Concomitant]
     Route: 048
  9. TYLENOL W/ CODEINE NO. 4 [Concomitant]
     Dosage: DOSE: ONE OR TWO AS NEEDED
     Route: 048
  10. FOLIC ACID [Concomitant]
     Indication: STOMATITIS
  11. LYRICA [Concomitant]
     Dosage: DOSE: 3 TABLETS
  12. FLUCONAZOLE [Concomitant]
     Route: 048
  13. ACTONEL [Concomitant]
     Route: 048
  14. DEMEROL [Concomitant]
     Indication: HEADACHE
     Route: 048

REACTIONS (3)
  - BACK DISORDER [None]
  - PARAESTHESIA [None]
  - TYPE 1 DIABETES MELLITUS [None]
